FAERS Safety Report 11359489 (Version 1)
Quarter: 2015Q3

REPORT INFORMATION
  Report Type: Spontaneous
  Country: US (occurrence: None)
  Receive Date: 20150807
  Receipt Date: 20150807
  Transmission Date: 20151125
  Serious: Yes (Hospitalization, Other)
  Sender: FDA-Public Use
  Company Number: None

PATIENT
  Age: 49 Year
  Sex: Female
  Weight: 66.68 kg

DRUGS (7)
  1. METFORMIN [Suspect]
     Active Substance: METFORMIN HYDROCHLORIDE
     Indication: TYPE 2 DIABETES MELLITUS
     Dosage: 500 MG 2 PILLS TWICE DAILY BY MOUTH??SO FAR
     Route: 048
     Dates: end: 20150610
  2. HUMALOG [Concomitant]
     Active Substance: INSULIN LISPRO
  3. VICODIN [Concomitant]
     Active Substance: ACETAMINOPHEN\HYDROCODONE BITARTRATE
  4. LANTUS [Concomitant]
     Active Substance: INSULIN GLARGINE
  5. SIMVASTIN [Concomitant]
     Active Substance: SIMVASTATIN
  6. ALBUTEROL INHALER [Concomitant]
     Active Substance: ALBUTEROL
  7. CALTRATE 600D [Concomitant]

REACTIONS (5)
  - Lethargy [None]
  - Confusional state [None]
  - Asthenia [None]
  - Chills [None]
  - Pyrexia [None]

NARRATIVE: CASE EVENT DATE: 20150620
